FAERS Safety Report 24415156 (Version 1)
Quarter: 2024Q4

REPORT INFORMATION
  Report Type: Spontaneous
  Country: TR (occurrence: TR)
  Receive Date: 20241009
  Receipt Date: 20241009
  Transmission Date: 20250114
  Serious: Yes (Other)
  Sender: ROCHE
  Company Number: TR-ROCHE-10000098235

PATIENT
  Age: 56 Year
  Sex: Female

DRUGS (2)
  1. PERJETA [Suspect]
     Active Substance: PERTUZUMAB
     Indication: Breast cancer
     Route: 065
     Dates: start: 202205
  2. HERCEPTIN [Suspect]
     Active Substance: TRASTUZUMAB
     Indication: Breast cancer
     Route: 065
     Dates: start: 202205

REACTIONS (5)
  - Acne [Unknown]
  - Scar [Unknown]
  - Rash [Unknown]
  - Metastases to lung [Unknown]
  - Ill-defined disorder [Unknown]
